FAERS Safety Report 23220563 (Version 2)
Quarter: 2024Q2

REPORT INFORMATION
  Report Type: Report from Study
  Country: US (occurrence: US)
  Receive Date: 20231123
  Receipt Date: 20240413
  Transmission Date: 20240716
  Serious: No
  Sender: FDA-Public Use
  Company Number: US-AstraZeneca-CH-00510070A

PATIENT
  Age: 63 Year
  Sex: Female

DRUGS (2)
  1. STRENSIQ [Suspect]
     Active Substance: ASFOTASE ALFA
     Indication: Hypophosphatasia
     Dosage: 148 MILLIGRAM, TIW
     Route: 058
     Dates: start: 20231113
  2. STRENSIQ [Suspect]
     Active Substance: ASFOTASE ALFA
     Dosage: 160 MILLIGRAM
     Route: 065
     Dates: start: 20231113

REACTIONS (2)
  - Off label use [Unknown]
  - Injection site pain [Recovered/Resolved]

NARRATIVE: CASE EVENT DATE: 20231113
